FAERS Safety Report 17370294 (Version 1)
Quarter: 2020Q1

REPORT INFORMATION
  Report Type: Spontaneous
  Country: US (occurrence: US)
  Receive Date: 20200205
  Receipt Date: 20200205
  Transmission Date: 20200409
  Serious: Yes (Death, Hospitalization)
  Sender: FDA-Public Use
  Company Number: US-ALVOGEN-2020-ALVOGEN-103748

PATIENT
  Age: 32 Year
  Sex: Male

DRUGS (7)
  1. CHLORPHENAMINE [Suspect]
     Active Substance: CHLORPHENIRAMINE MALEATE
     Indication: SUICIDE ATTEMPT
     Route: 065
  2. MITRAGYNA SPECIOSA [Suspect]
     Active Substance: HERBALS\MITRAGYNINE
     Indication: SUICIDE ATTEMPT
     Route: 065
  3. BUPROPION. [Suspect]
     Active Substance: BUPROPION
     Indication: SUICIDE ATTEMPT
     Route: 065
  4. DIAMORPHINE [Suspect]
     Active Substance: DIAMORPHINE
     Indication: SUICIDE ATTEMPT
     Route: 065
  5. SERTRALINE [Suspect]
     Active Substance: SERTRALINE HYDROCHLORIDE
     Indication: SUICIDE ATTEMPT
     Route: 065
  6. DEXTROMETHORPHAN [Suspect]
     Active Substance: DEXTROMETHORPHAN
     Indication: SUICIDE ATTEMPT
     Route: 065
  7. COCAINE [Suspect]
     Active Substance: COCAINE
     Indication: SUICIDE ATTEMPT
     Route: 065

REACTIONS (1)
  - Completed suicide [Fatal]
